FAERS Safety Report 7559942-0 (Version None)
Quarter: 2011Q2

REPORT INFORMATION
  Report Type: 
  Country: None (occurrence: None)
  Receive Date: 20110621
  Receipt Date: 20110607
  Transmission Date: 20111010
  Serious: Yes (Other)
  Sender: FDA-Public Use
  Company Number: PHHY2011AU42594

PATIENT
  Sex: Female

DRUGS (2)
  1. TEGRETOL [Suspect]
     Indication: PAIN IN EXTREMITY
     Dosage: 0.5 DF, QHS
     Route: 048
     Dates: start: 20110509
  2. TEGRETOL [Suspect]
     Dosage: 1 DF, QHS
     Route: 048
     Dates: start: 20110514

REACTIONS (9)
  - BREAST ABSCESS [None]
  - CHEST PAIN [None]
  - FATIGUE [None]
  - LETHARGY [None]
  - BREAST PAIN [None]
  - HORDEOLUM [None]
  - HEAD DISCOMFORT [None]
  - HYPERSOMNIA [None]
  - MALAISE [None]
